FAERS Safety Report 10011030 (Version 1)
Quarter: 2014Q1

REPORT INFORMATION
  Report Type: Spontaneous
  Country: DK (occurrence: None)
  Receive Date: 20140311
  Receipt Date: 20140311
  Transmission Date: 20141002
  Serious: Yes (Other)
  Sender: FDA-Public Use
  Company Number: DK-DEXPHARM-20140094

PATIENT
  Age: 66 Year
  Sex: Female

DRUGS (1)
  1. OMEPRAZOLE [Suspect]
     Dosage: 1-2 WEEKS

REACTIONS (1)
  - Subacute cutaneous lupus erythematosus [None]
